FAERS Safety Report 9425304 (Version 2)
Quarter: 2013Q3

REPORT INFORMATION
  Report Type: Spontaneous
  Country: NO (occurrence: NO)
  Receive Date: 20130729
  Receipt Date: 20130821
  Transmission Date: 20140515
  Serious: Yes (Other)
  Sender: FDA-Public Use
  Company Number: PHHY2013NO078662

PATIENT
  Sex: Male

DRUGS (4)
  1. CITALOPRAM [Suspect]
     Dates: start: 19970224, end: 1998
  2. TRUXAL [Suspect]
     Dosage: 100 MG, BID
     Dates: start: 19910125, end: 19910125
  3. SAROTEX [Suspect]
     Dates: start: 1992, end: 1997
  4. CISORDINOL ACUTARD [Suspect]
     Dates: start: 1990, end: 2001

REACTIONS (5)
  - Obesity [Unknown]
  - Chills [Unknown]
  - Gynaecomastia [Unknown]
  - Urinary retention [Unknown]
  - Erectile dysfunction [Unknown]
